FAERS Safety Report 10730176 (Version 2)
Quarter: 2015Q1

REPORT INFORMATION
  Report Type: Spontaneous
  Country: FR (occurrence: FR)
  Receive Date: 20150122
  Receipt Date: 20150205
  Transmission Date: 20150721
  Serious: Yes (Hospitalization, Disabling)
  Sender: FDA-Public Use
  Company Number: FR-BRISTOL-MYERS SQUIBB COMPANY-BMS-2015-001068

PATIENT
  Age: 68 Year
  Sex: Female

DRUGS (7)
  1. CRESTOR [Concomitant]
     Active Substance: ROSUVASTATIN CALCIUM
  2. CORTANCYL [Concomitant]
     Active Substance: PREDNISONE
  3. CALCIUM ACETATE. [Concomitant]
     Active Substance: CALCIUM ACETATE
  4. ORENCIA [Suspect]
     Active Substance: ABATACEPT
     Indication: RHEUMATOID ARTHRITIS
     Dosage: 8 MG/KG, UNK
     Route: 042
     Dates: start: 20120622, end: 20121207
  5. LERCAN [Concomitant]
     Active Substance: LERCANIDIPINE
  6. CELEBREX [Concomitant]
     Active Substance: CELECOXIB
  7. METOJECT [Concomitant]
     Active Substance: METHOTREXATE SODIUM

REACTIONS (3)
  - Headache [Recovered/Resolved]
  - Labyrinthitis [Recovered/Resolved with Sequelae]
  - Deafness unilateral [Recovered/Resolved with Sequelae]

NARRATIVE: CASE EVENT DATE: 201206
